FAERS Safety Report 9263205 (Version 1)
Quarter: 2013Q2

REPORT INFORMATION
  Report Type: Report from Study
  Country: FR (occurrence: FR)
  Receive Date: 20130430
  Receipt Date: 20130430
  Transmission Date: 20140414
  Serious: Yes (Death)
  Sender: FDA-Public Use
  Company Number: FR-ROCHE-1219635

PATIENT
  Age: 74 Year
  Sex: Male

DRUGS (4)
  1. BEVACIZUMAB [Suspect]
     Indication: COLON CANCER
     Dosage: LAST DOSE: 290MG
     Route: 065
  2. IRINOTECAN [Suspect]
     Indication: COLON CANCER
     Dosage: LAST DOSE: 300MG
     Route: 065
  3. 5-FU [Suspect]
     Indication: COLON CANCER
     Dosage: LAST DOSE: 3000MG AS CONTINUOUS DOSING
     Route: 065
  4. FOLINIC ACID [Suspect]
     Indication: COLON CANCER
     Dosage: LAST DOSE: 300MG
     Route: 065

REACTIONS (1)
  - Altered state of consciousness [Fatal]
